FAERS Safety Report 7777568-0 (Version None)
Quarter: 2011Q3

REPORT INFORMATION
  Report Type: 
  Country: None (occurrence: None)
  Receive Date: 20110922
  Receipt Date: 20110906
  Transmission Date: 20111222
  Serious: Yes (Other)
  Sender: FDA-Public Use
  Company Number: FK201101933

PATIENT

DRUGS (6)
  1. REVLIMID [Suspect]
     Indication: HODGKIN'S DISEASE
     Dosage: 15 MG, 1 IN 1 D
  2. CYTARABINE [Suspect]
     Indication: HODGKIN'S DISEASE
  3. G-CSF(GRANULOCYTE COLONY STIMULATING FACTOR)(GRANULOCYTE COLONY STIMUL [Concomitant]
  4. CISPLATIN [Suspect]
     Indication: HODGKIN'S DISEASE
  5. METHYLPREDNISOLONE [Suspect]
     Indication: HODGKIN'S DISEASE
  6. ETOPOSIDE [Suspect]
     Indication: HODGKIN'S DISEASE

REACTIONS (3)
  - ANAEMIA [None]
  - NEUTROPENIA [None]
  - THROMBOCYTOPENIA [None]
